FAERS Safety Report 6755382-2 (Version None)
Quarter: 2010Q2

REPORT INFORMATION
  Report Type: 
  Country: None (occurrence: None)
  Receive Date: 20100604
  Receipt Date: 20100525
  Transmission Date: 20101027
  Serious: Yes (Other)
  Sender: FDA-Public Use
  Company Number: US-PFIZER INC-2010065886

PATIENT
  Sex: Female
  Weight: 14 kg

DRUGS (4)
  1. GENOTROPIN [Suspect]
     Indication: HYPOPITUITARISM
     Dosage: 0.6 MG, 1X/DAY
     Route: 058
     Dates: start: 20090101, end: 20100401
  2. LEVOTHYROXINE [Concomitant]
     Dosage: 44 UG, 1X/DAY
     Route: 048
  3. DDAVP [Concomitant]
     Dosage: 0.12 UG IN THE MORNING, 0.2 UG IN THE EVENING
  4. PREDNISONE [Concomitant]
     Indication: BLOOD CORTICOTROPHIN ABNORMAL
     Dosage: 0.6 UG, 1X/DAY

REACTIONS (2)
  - ARACHNOID CYST [None]
  - CONDITION AGGRAVATED [None]
